FAERS Safety Report 6381466-7 (Version None)
Quarter: 2009Q3

REPORT INFORMATION
  Report Type: 
  Country: None (occurrence: None)
  Receive Date: 20090929
  Receipt Date: 20090821
  Transmission Date: 20100115
  Serious: No
  Sender: FDA-Public Use
  Company Number: US-ALLERGAN-0911763US

PATIENT
  Sex: Female

DRUGS (2)
  1. BLEPHAMIDE [Suspect]
     Indication: CONJUNCTIVITIS
  2. NEOMYCIN SULFATE W/POLYMYCIN B/HYDROCORTISO. [Suspect]
     Indication: CONJUNCTIVITIS

REACTIONS (1)
  - HYPERSENSITIVITY [None]
